FAERS Safety Report 20370272 (Version 1)
Quarter: 2022Q1

REPORT INFORMATION
  Report Type: Spontaneous
  Country: US (occurrence: None)
  Receive Date: 20220122
  Receipt Date: 20220122
  Transmission Date: 20220423
  Serious: Yes (Disabling)
  Sender: FDA-Public Use
  Company Number: None

PATIENT
  Age: 40 Year
  Sex: Female
  Weight: 82.35 kg

DRUGS (13)
  1. VENLAFAXINE HYDROCHLORIDE [Suspect]
     Active Substance: VENLAFAXINE HYDROCHLORIDE
     Indication: Migraine
     Dosage: OTHER QUANTITY : 1 CAPSULE(S);?FREQUENCY : DAILY;?
     Route: 048
     Dates: start: 20210408, end: 20210504
  2. DIGOXIN [Concomitant]
     Active Substance: DIGOXIN
  3. TOPAMAX [Concomitant]
     Active Substance: TOPIRAMATE
  4. VITAMIN D3 [Concomitant]
     Active Substance: CHOLECALCIFEROL
  5. CLONIDINE [Concomitant]
     Active Substance: CLONIDINE
  6. ZYRTEC [Concomitant]
     Active Substance: CETIRIZINE HYDROCHLORIDE
  7. TRIPLE MAGNESIUM COMPLEX [Concomitant]
  8. VYVANSE [Concomitant]
     Active Substance: LISDEXAMFETAMINE DIMESYLATE
  9. HERBALS\TURMERIC [Concomitant]
     Active Substance: HERBALS\TURMERIC
  10. MELATONIN [Concomitant]
     Active Substance: MELATONIN
  11. BACLOFEN [Concomitant]
     Active Substance: BACLOFEN
  12. EPIPEN [Concomitant]
     Active Substance: EPINEPHRINE
  13. whole pack of liquid IV [Concomitant]

REACTIONS (5)
  - Dissociation [None]
  - Fatigue [None]
  - Bedridden [None]
  - Myasthenia gravis [None]
  - Post viral fatigue syndrome [None]

NARRATIVE: CASE EVENT DATE: 20210422
